FAERS Safety Report 4716395-5 (Version None)
Quarter: 2005Q3

REPORT INFORMATION
  Report Type: 
  Country: None (occurrence: None)
  Receive Date: 20050713
  Receipt Date: 20050629
  Transmission Date: 20060218
  Serious: Yes (Other)
  Sender: FDA-Public Use
  Company Number: SUS1-2005-00521

PATIENT
  Age: 16 Year
  Sex: Female
  Weight: 37.6 kg

DRUGS (3)
  1. PENTASA [Suspect]
     Indication: CROHN'S DISEASE
     Dates: start: 20050611, end: 20050629
  2. PREDNISONE [Concomitant]
  3. MERCAPTOPURINE [Concomitant]

REACTIONS (2)
  - HALLUCINATION, AUDITORY [None]
  - PARANOIA [None]
